FAERS Safety Report 5499308-0 (Version None)
Quarter: 2007Q4

REPORT INFORMATION
  Report Type: 
  Country: None (occurrence: None)
  Receive Date: 20071026
  Receipt Date: 20071025
  Transmission Date: 20080405
  Serious: Yes (Other)
  Sender: FDA-Public Use
  Company Number: A0689767A

PATIENT
  Age: 75 Year
  Sex: Female

DRUGS (1)
  1. ECOTRIN REGULAR STRENGTH TABLETS [Suspect]
     Route: 048

REACTIONS (3)
  - DEAFNESS [None]
  - EAR INFECTION [None]
  - TINNITUS [None]
